FAERS Safety Report 7037315-7 (Version None)
Quarter: 2010Q4

REPORT INFORMATION
  Report Type: 
  Country: None (occurrence: None)
  Receive Date: 20101011
  Receipt Date: 20101005
  Transmission Date: 20110411
  Serious: Yes (Hospitalization)
  Sender: FDA-Public Use
  Company Number: AU-SANOFI-AVENTIS-2010SA059749

PATIENT
  Age: 60 Year
  Sex: Female

DRUGS (2)
  1. TELFAST [Suspect]
  2. WARFARIN SODIUM [Concomitant]

REACTIONS (2)
  - BLINDNESS [None]
  - HAEMORRHAGE [None]
